FAERS Safety Report 11175288 (Version 1)
Quarter: 2015Q2

REPORT INFORMATION
  Report Type: Spontaneous
  Country: US (occurrence: None)
  Receive Date: 20150515
  Receipt Date: 20150515
  Transmission Date: 20150821
  Serious: Yes (Other)
  Sender: FDA-Public Use
  Company Number: 120898

PATIENT
  Age: 64 Year
  Sex: Female
  Weight: 79.4 kg

DRUGS (1)
  1. CIMZIA [Suspect]
     Active Substance: CERTOLIZUMAB PEGOL
     Indication: RHEUMATOID ARTHRITIS
     Dosage: INITIAL DOSE
     Dates: start: 201404, end: 201404

REACTIONS (1)
  - Herpes zoster [None]

NARRATIVE: CASE EVENT DATE: 201405
